FAERS Safety Report 21196705 (Version 1)
Quarter: 2022Q3

REPORT INFORMATION
  Report Type: Spontaneous
  Country: DE (occurrence: DE)
  Receive Date: 20220810
  Receipt Date: 20220810
  Transmission Date: 20221027
  Serious: Yes (Other)
  Sender: FDA-Public Use
  Company Number: DE-JAZZ-2022-DE-023182

PATIENT
  Age: 53 Year

DRUGS (1)
  1. VYXEOS [Suspect]
     Active Substance: CYTARABINE\DAUNORUBICIN
     Indication: Product used for unknown indication
     Dosage: DAY 1 OF INDUCTION THERAPY
     Dates: start: 20210416

REACTIONS (3)
  - Sepsis [Unknown]
  - Pneumonia [Unknown]
  - Pyrexia [Unknown]
